FAERS Safety Report 14374401 (Version 2)
Quarter: 2018Q1

REPORT INFORMATION
  Report Type: Spontaneous
  Country: FR (occurrence: FR)
  Receive Date: 20180111
  Receipt Date: 20180112
  Transmission Date: 20180509
  Serious: Yes (Death, Other)
  Sender: FDA-Public Use
  Company Number: FR-CONCORDIA PHARMACEUTICALS INC.-GSH201801-000066

PATIENT
  Age: 17 Year
  Sex: Female
  Weight: 52 kg

DRUGS (8)
  1. PREDNISOLONE. [Suspect]
     Active Substance: PREDNISOLONE
     Indication: EVANS SYNDROME
     Route: 065
     Dates: start: 200803, end: 200809
  2. PLAQUENIL [Suspect]
     Active Substance: HYDROXYCHLOROQUINE SULFATE
     Indication: EVANS SYNDROME
     Dosage: 2 CP PAR JOUR
     Route: 048
     Dates: start: 20080908
  3. BACTRIM [Concomitant]
     Active Substance: SULFAMETHOXAZOLE\TRIMETHOPRIM
  4. MABTHERA [Suspect]
     Active Substance: RITUXIMAB
     Dosage: IN TOTAL
     Route: 042
     Dates: start: 20081124, end: 20081124
  5. TARDYFERON [Concomitant]
     Active Substance: FERROUS SULFATE
  6. SPECIAFOLDINE [Concomitant]
     Active Substance: FOLIC ACID
  7. DECTANCYL [Suspect]
     Active Substance: DEXAMETHASONE
     Indication: EVANS SYNDROME
     Route: 065
     Dates: start: 200809, end: 20081215
  8. MABTHERA [Suspect]
     Active Substance: RITUXIMAB
     Indication: EVANS SYNDROME
     Route: 042
     Dates: start: 20080825, end: 20080917

REACTIONS (2)
  - Anogenital warts [Not Recovered/Not Resolved]
  - Vulvovaginal warts [Not Recovered/Not Resolved]

NARRATIVE: CASE EVENT DATE: 200905
